FAERS Safety Report 9167597 (Version 2)
Quarter: 2013Q2

REPORT INFORMATION
  Report Type: Spontaneous
  Country: GB (occurrence: None)
  Receive Date: 20130304
  Receipt Date: 20130426
  Transmission Date: 20140414
  Serious: Yes (Other)
  Sender: FDA-Public Use
  Company Number: AUR-APL-2013-01633

PATIENT
  Age: 71 Year
  Sex: Male

DRUGS (2)
  1. AMLODIPINE [Suspect]
     Indication: PRODUCT USED FOR UNKNOWN INDICATION
     Dosage: 5MG (5MG, 1 IN 1D)
     Dates: start: 20130115
  2. SIMVASTATIN [Concomitant]

REACTIONS (6)
  - Joint swelling [None]
  - Local swelling [None]
  - Constipation [None]
  - Abnormal faeces [None]
  - Hypokinesia [None]
  - Asthenia [None]
